FAERS Safety Report 15802431 (Version 1)
Quarter: 2019Q1

REPORT INFORMATION
  Report Type: Spontaneous
  Country: US (occurrence: US)
  Receive Date: 20190108
  Receipt Date: 20190108
  Transmission Date: 20190417
  Serious: Yes (Death)
  Sender: FDA-Public Use
  Company Number: None

PATIENT
  Age: 71 Year
  Sex: Male

DRUGS (26)
  1. PROCRIT [Concomitant]
     Active Substance: ERYTHROPOIETIN
  2. HYDROXYCHLOR [Concomitant]
     Active Substance: HYDROXYCHLOROQUINE
  3. CARVEDILOL. [Concomitant]
     Active Substance: CARVEDILOL
  4. HUMALOG [Concomitant]
     Active Substance: INSULIN LISPRO
  5. CLONIDINE. [Concomitant]
     Active Substance: CLONIDINE
  6. LEVOFLOXACIN. [Concomitant]
     Active Substance: LEVOFLOXACIN
  7. PANTOPRAZOLE [Concomitant]
     Active Substance: PANTOPRAZOLE
  8. CEPHALEXIN. [Concomitant]
     Active Substance: CEPHALEXIN
  9. NYSTATIN. [Concomitant]
     Active Substance: NYSTATIN
  10. LANTUS [Concomitant]
     Active Substance: INSULIN GLARGINE
  11. PRAVASTATIN. [Concomitant]
     Active Substance: PRAVASTATIN
  12. DONEPEZIL. [Concomitant]
     Active Substance: DONEPEZIL
  13. MYCOPHENOLIC [Concomitant]
     Active Substance: MYCOPHENOLIC ACID
  14. METAFOLBIC [Concomitant]
  15. FUROSEMIDE. [Concomitant]
     Active Substance: FUROSEMIDE
  16. VALSARTAN. [Concomitant]
     Active Substance: VALSARTAN
  17. BENLYSTA [Suspect]
     Active Substance: BELIMUMAB
     Indication: SYSTEMIC LUPUS ERYTHEMATOSUS
     Dosage: ?          OTHER FREQUENCY:QW;?
     Route: 058
     Dates: start: 20181106
  18. OMLESA MEDOX [Concomitant]
  19. FLUCONAZOLE. [Concomitant]
     Active Substance: FLUCONAZOLE
  20. VITAMIN D [Concomitant]
     Active Substance: CHOLECALCIFEROL
  21. ERYTHROMYCIN. [Concomitant]
     Active Substance: ERYTHROMYCIN
  22. APAP/CODEINE [Concomitant]
     Active Substance: ACETAMINOPHEN\CODEINE PHOSPHATE
  23. AZATHIOPRINE. [Concomitant]
     Active Substance: AZATHIOPRINE
  24. DOXAZOSIN [Concomitant]
     Active Substance: DOXAZOSIN\DOXAZOSIN MESYLATE
  25. CITALOPRAM [Concomitant]
     Active Substance: CITALOPRAM HYDROBROMIDE
  26. SIMVASTATIN. [Concomitant]
     Active Substance: SIMVASTATIN

REACTIONS (1)
  - Death [None]

NARRATIVE: CASE EVENT DATE: 20190106
